FAERS Safety Report 18074022 (Version 1)
Quarter: 2020Q3

REPORT INFORMATION
  Report Type: Spontaneous
  Country: US (occurrence: US)
  Receive Date: 20200727
  Receipt Date: 20200727
  Transmission Date: 20201103
  Serious: Yes (Hospitalization, Other)
  Sender: FDA-Public Use
  Company Number: US-PURDUE PHARMA-USA-2020-0159124

PATIENT
  Sex: Male

DRUGS (3)
  1. OXYCODONE HYDROCHLORIDE (SIMILAR TO NDA 22?272) [Suspect]
     Active Substance: OXYCODONE HYDROCHLORIDE
     Indication: PAIN
     Dosage: 30 MG, 5 TO 6 TIMES A DAY
     Route: 048
     Dates: start: 2015, end: 2020
  2. TRAMADOL. [Suspect]
     Active Substance: TRAMADOL
     Indication: PAIN
     Dosage: 100 MG, 2 TO 3 TABLETS
     Route: 048
  3. OXYCONTIN [Suspect]
     Active Substance: OXYCODONE HYDROCHLORIDE
     Indication: LOWER LIMB FRACTURE
     Route: 048

REACTIONS (9)
  - Fall [Unknown]
  - Lower limb fracture [Unknown]
  - Drug ineffective [Not Recovered/Not Resolved]
  - Musculoskeletal discomfort [Unknown]
  - Condition aggravated [Not Recovered/Not Resolved]
  - Constipation [Not Recovered/Not Resolved]
  - Hospitalisation [Recovered/Resolved]
  - Gait inability [Not Recovered/Not Resolved]
  - Physical disability [Not Recovered/Not Resolved]
